FAERS Safety Report 5120134-6 (Version None)
Quarter: 2006Q4

REPORT INFORMATION
  Report Type: 
  Country: None (occurrence: None)
  Receive Date: 20061002
  Receipt Date: 20061002
  Transmission Date: 20070319
  Serious: Yes (Other)
  Sender: FDA-Public Use
  Company Number: None

PATIENT
  Age: 19 Year
  Sex: Male
  Weight: 104.3273 kg

DRUGS (1)
  1. PAXIL [Suspect]
     Indication: ANXIETY
     Dosage: 10 MG QD PO
     Route: 048
     Dates: start: 20050130, end: 20050220

REACTIONS (4)
  - ANXIETY [None]
  - CONDITION AGGRAVATED [None]
  - LOSS OF LIBIDO [None]
  - SUICIDAL IDEATION [None]
